FAERS Safety Report 6704063-X (Version None)
Quarter: 2010Q2

REPORT INFORMATION
  Report Type: 
  Country: None (occurrence: None)
  Receive Date: 20100430
  Receipt Date: 20100426
  Transmission Date: 20101027
  Serious: Yes (Hospitalization)
  Sender: FDA-Public Use
  Company Number: JP-BAYER-200914386BYL

PATIENT
  Age: 75 Year
  Sex: Male
  Weight: 62 kg

DRUGS (7)
  1. NEXAVAR [Suspect]
     Indication: RENAL CANCER
     Dosage: TOTAL DAILY DOSE: 800 MG  UNIT DOSE: 200 MG
     Route: 048
     Dates: start: 20091029, end: 20091104
  2. NEXAVAR [Suspect]
     Dosage: TOTAL DAILY DOSE: 400 MG  UNIT DOSE: 200 MG
     Route: 048
     Dates: start: 20091105, end: 20100324
  3. TAMSULOSIN HCL [Concomitant]
     Dosage: UNIT DOSE: 0.2 MG
     Route: 048
     Dates: start: 20091029
  4. ALLOPURINOL [Concomitant]
     Dosage: UNIT DOSE: 100 MG
     Route: 048
     Dates: start: 20091029
  5. GASTER D [Concomitant]
     Dosage: UNIT DOSE: 20 MG
     Route: 048
     Dates: start: 20091029
  6. WARFARIN SODIUM [Concomitant]
     Dosage: UNIT DOSE: 1 MG
     Route: 048
     Dates: start: 20091029
  7. EXCEGRAN [Concomitant]
     Dosage: UNIT DOSE: 100 MG
     Route: 048
     Dates: start: 20091029

REACTIONS (3)
  - NEUTROPHIL COUNT DECREASED [None]
  - PULMONARY TUBERCULOSIS [None]
  - WHITE BLOOD CELL COUNT DECREASED [None]
